FAERS Safety Report 21869473 (Version 2)
Quarter: 2025Q4

REPORT INFORMATION
  Report Type: Spontaneous
  Country: US (occurrence: US)
  Receive Date: 20230117
  Receipt Date: 20251109
  Transmission Date: 20260117
  Serious: No
  Sender: SANOFI AVENTIS
  Company Number: US-SA-SAC20230112000973

PATIENT
  Sex: Female
  Weight: 90.91 kg

DRUGS (65)
  1. DUPIXENT [Suspect]
     Active Substance: DUPILUMAB
     Indication: Asthma
     Dosage: 300 MG, QOW
     Route: 058
     Dates: start: 20180621
  2. PYRIDOXINE [Concomitant]
     Active Substance: PYRIDOXINE
  3. DEMANNOSE [Concomitant]
     Active Substance: DEMANNOSE
  4. CHONDROITIN SULFATE (BOVINE)\GLUCOSAMINE [Concomitant]
     Active Substance: CHONDROITIN SULFATE (BOVINE)\GLUCOSAMINE SULFATE
  5. VITAMIN D3 [Concomitant]
     Active Substance: CHOLECALCIFEROL
  6. CALCIUM [Concomitant]
     Active Substance: CALCIUM
  7. CYANOCOBALAMIN [Concomitant]
     Active Substance: CYANOCOBALAMIN
  8. NAFTIN [Concomitant]
     Active Substance: NAFTIFINE HYDROCHLORIDE
  9. CICLOPIROX [Concomitant]
     Active Substance: CICLOPIROX
  10. HYDROCORTISONE [Concomitant]
     Active Substance: HYDROCORTISONE
  11. EPIPEN [Concomitant]
     Active Substance: EPINEPHRINE
  12. VELTIN [Concomitant]
     Active Substance: CLINDAMYCIN PHOSPHATE\TRETINOIN
  13. DAPSONE [Concomitant]
     Active Substance: DAPSONE
  14. VOLTAREN ARTHRITIS PAIN [Concomitant]
     Active Substance: DICLOFENAC SODIUM
  15. CHLORHEXIDINE GLUCONATE [Concomitant]
     Active Substance: CHLORHEXIDINE GLUCONATE
  16. NYSTATIN [Concomitant]
     Active Substance: NYSTATIN
  17. EZETIMIBE [Concomitant]
     Active Substance: EZETIMIBE
  18. METFORMIN HYDROCHLORIDE [Concomitant]
     Active Substance: METFORMIN HYDROCHLORIDE
  19. SIMPLY SALINE [Concomitant]
  20. ALLEGRA ALLERGY [Concomitant]
     Active Substance: FEXOFENADINE HYDROCHLORIDE
  21. ALBUTEROL SULFATE [Concomitant]
     Active Substance: ALBUTEROL SULFATE
  22. MONTELUKAST SODIUM [Concomitant]
     Active Substance: MONTELUKAST SODIUM
  23. ARNUITY ELLIPTA [Concomitant]
     Active Substance: FLUTICASONE FUROATE
  24. INCRUSE ELLIPTA [Concomitant]
     Active Substance: UMECLIDINIUM BROMIDE
  25. VENTOLIN HFA [Concomitant]
     Active Substance: ALBUTEROL SULFATE
  26. AZELASTINE HYDROCHLORIDE [Concomitant]
     Active Substance: AZELASTINE HYDROCHLORIDE
  27. FLUTICASONE PROPIONATE [Concomitant]
     Active Substance: FLUTICASONE PROPIONATE
  28. BUSPIRONE HCL [Concomitant]
     Active Substance: BUSPIRONE HYDROCHLORIDE
  29. DEPLIN [LEVOMEFOLIC ACID] [Concomitant]
  30. ASHLYNA [Concomitant]
     Active Substance: ETHINYL ESTRADIOL\LEVONORGESTREL
  31. DULOXETINE HYDROCHLORIDE [Concomitant]
     Active Substance: DULOXETINE HYDROCHLORIDE
  32. DULOXETINE [Concomitant]
     Active Substance: DULOXETINE
  33. RITALIN [Concomitant]
     Active Substance: METHYLPHENIDATE HYDROCHLORIDE
  34. METHYLPREDNISOLONE [Concomitant]
     Active Substance: METHYLPREDNISOLONE
  35. DIVALPROEX SODIUM [Concomitant]
     Active Substance: DIVALPROEX SODIUM
  36. ONDANSETRON [Concomitant]
     Active Substance: ONDANSETRON
  37. ATORVASTATIN CALCIUM [Concomitant]
     Active Substance: ATORVASTATIN CALCIUM
  38. METAMUCIL [Concomitant]
     Active Substance: PLANTAGO SEED
  39. OXYBUTYNIN CHLORIDE [Concomitant]
     Active Substance: OXYBUTYNIN CHLORIDE
  40. SOLIFENACIN SUCCINATE [Concomitant]
     Active Substance: SOLIFENACIN SUCCINATE
  41. MYRBETRIQ [Concomitant]
     Active Substance: MIRABEGRON
  42. FIBER THERAPY (CALCIUM POLYCARBOPHIL) [Concomitant]
     Active Substance: CALCIUM POLYCARBOPHIL
  43. GAS-X [Concomitant]
     Active Substance: DIMETHICONE
  44. PREVACID [Concomitant]
     Active Substance: LANSOPRAZOLE
  45. DEXTROSE [Concomitant]
     Active Substance: DEXTROSE MONOHYDRATE
  46. THICK IT 2 [Concomitant]
  47. DIGESTIVE SUPPORT [Concomitant]
  48. PROBIOTICS NOS [Concomitant]
     Active Substance: PROBIOTICS NOS
  49. NORETHINDRONE [Concomitant]
     Active Substance: NORETHINDRONE
  50. VITAMIN B12 [Concomitant]
     Active Substance: CYANOCOBALAMIN
  51. ALLEGRA D-12 HOUR [Concomitant]
     Active Substance: FEXOFENADINE HYDROCHLORIDE\PSEUDOEPHEDRINE HYDROCHLORIDE
  52. MOMETASONE FUROATE [Concomitant]
     Active Substance: MOMETASONE FUROATE
  53. PREGABALIN [Concomitant]
     Active Substance: PREGABALIN
  54. DOXEPIN HYDROCHLORIDE [Concomitant]
     Active Substance: DOXEPIN HYDROCHLORIDE
  55. LACOSAMIDE [Concomitant]
     Active Substance: LACOSAMIDE
  56. ATOMOXETINE HYDROCHLORIDE [Concomitant]
     Active Substance: ATOMOXETINE HYDROCHLORIDE
  57. LAMOTRIGINE [Concomitant]
     Active Substance: LAMOTRIGINE
  58. GAVISCON [Concomitant]
     Active Substance: ALUMINUM HYDROXIDE\MAGNESIUM CARBONATE
  59. UBRELVY [Concomitant]
     Active Substance: UBROGEPANT
  60. ITCH-X [Concomitant]
     Active Substance: BENZYL ALCOHOL\PRAMOXINE HYDROCHLORIDE
  61. LITHIUM CARBONATE [Concomitant]
     Active Substance: LITHIUM CARBONATE
  62. TOPIRAMATE [Concomitant]
     Active Substance: TOPIRAMATE
  63. OLOPATADINE HYDROCHLORIDE [Concomitant]
     Active Substance: OLOPATADINE HYDROCHLORIDE
  64. VITAMINS [Concomitant]
     Active Substance: VITAMINS
  65. OMEPRAZOLE [Concomitant]
     Active Substance: OMEPRAZOLE

REACTIONS (2)
  - Dermatitis contact [Unknown]
  - Urticaria [Unknown]
